FAERS Safety Report 8760035 (Version 1)
Quarter: 2012Q4

REPORT INFORMATION
  Report Type: 
  Country: CH (occurrence: CH)
  Receive Date: 20120829
  Receipt Date: 20120829
  Transmission Date: 20130627
  Serious: Yes (Hospitalization)
  Sender: FDA-Public Use
  Company Number: CH-ROCHE-1106213

PATIENT
  Age: 74 Year
  Sex: Male

DRUGS (13)
  1. TOREM [Suspect]
     Indication: ESSENTIAL HYPERTENSION
     Route: 048
     Dates: end: 20120628
  2. DALMADORM [Suspect]
     Indication: PRODUCT USED FOR UNKNOWN INDICATION
     Route: 048
  3. SULFAMETHOXAZOLE ET TRIMETHOPRIME [Suspect]
     Indication: STAPHYLOCOCCAL INFECTION
     Route: 048
     Dates: start: 20120327
  4. ASPIRIN CARDIO [Concomitant]
     Route: 048
  5. METOPROLOL SUCCINATE [Concomitant]
     Route: 048
  6. CRESTOR [Concomitant]
     Route: 048
  7. ZYLORIC [Concomitant]
     Route: 048
  8. SEROPRAM (SPAIN) [Concomitant]
     Route: 048
  9. PANTOZOL [Concomitant]
     Route: 048
  10. PRADIF [Concomitant]
     Route: 048
     Dates: end: 201206
  11. VITAMIN D3 [Concomitant]
     Route: 048
  12. COSOPT [Concomitant]
     Route: 047
  13. DAFALGAN [Concomitant]
     Route: 048
     Dates: end: 201206

REACTIONS (6)
  - Renal failure acute [Recovered/Resolved]
  - Hyperkalaemia [Recovered/Resolved]
  - Fall [Unknown]
  - Muscular weakness [Unknown]
  - Hyponatraemia [Recovered/Resolved]
  - Hypotension [Recovered/Resolved]
